FAERS Safety Report 20218235 (Version 1)
Quarter: 2021Q4

REPORT INFORMATION
  Report Type: Spontaneous
  Country: US (occurrence: US)
  Receive Date: 20211222
  Receipt Date: 20211222
  Transmission Date: 20220303
  Serious: No
  Sender: FDA-Public Use
  Company Number: US-PFIZER INC-202101402957

PATIENT
  Age: 86 Year
  Sex: Female

DRUGS (2)
  1. IBRANCE [Interacting]
     Active Substance: PALBOCICLIB
     Dosage: 100 MG CYCLIC (TAKE 1 TABLET BY MOUTH ONCE DAILY WITH OR WITHOUT FOOD FOR 21 DAYS FOLLOWED BY 7 DAYS
  2. AMIODARONE HYDROCHLORIDE [Interacting]
     Active Substance: AMIODARONE HYDROCHLORIDE

REACTIONS (2)
  - Drug interaction [Unknown]
  - Therapeutic product effect increased [Unknown]
